FAERS Safety Report 17842655 (Version 8)
Quarter: 2020Q4

REPORT INFORMATION
  Report Type: Spontaneous
  Country: JP (occurrence: JP)
  Receive Date: 20200529
  Receipt Date: 20201015
  Transmission Date: 20210113
  Serious: Yes (Death, Life-Threatening, Hospitalization)
  Sender: FDA-Public Use
  Company Number: JP-JNJFOC-20200530029

PATIENT
  Age: 63 Year
  Sex: Male

DRUGS (5)
  1. HALRACK [Concomitant]
     Active Substance: TRIAZOLAM
     Indication: PRODUCT USED FOR UNKNOWN INDICATION
     Route: 048
  2. XEPLION [Suspect]
     Active Substance: PALIPERIDONE PALMITATE
     Route: 030
     Dates: end: 20200427
  3. XEPLION [Suspect]
     Active Substance: PALIPERIDONE PALMITATE
     Route: 030
     Dates: end: 20200522
  4. XEPLION [Suspect]
     Active Substance: PALIPERIDONE PALMITATE
     Indication: SCHIZOPHRENIA
     Route: 030
     Dates: start: 2018
  5. DEPAKENE [Concomitant]
     Active Substance: VALPROIC ACID
     Indication: AFFECT LABILITY
     Route: 048

REACTIONS (7)
  - Neuroleptic malignant syndrome [Fatal]
  - Pneumonia [Fatal]
  - Decreased appetite [Fatal]
  - Musculoskeletal stiffness [Fatal]
  - Vomiting [Fatal]
  - Hepatic function abnormal [Fatal]
  - Fluid intake reduced [Fatal]

NARRATIVE: CASE EVENT DATE: 20200508
